FAERS Safety Report 6924608-4 (Version None)
Quarter: 2010Q3

REPORT INFORMATION
  Report Type: 
  Country: None (occurrence: None)
  Receive Date: 20100813
  Receipt Date: 20100805
  Transmission Date: 20110219
  Serious: Yes (Hospitalization)
  Sender: FDA-Public Use
  Company Number: US-AMGEN-QUU429540

PATIENT
  Sex: Male

DRUGS (2)
  1. ENBREL [Suspect]
     Indication: PSORIATIC ARTHROPATHY
     Route: 058
  2. ENBREL [Suspect]
     Indication: PSORIASIS

REACTIONS (7)
  - ARTHRALGIA [None]
  - CYST [None]
  - HEAT RASH [None]
  - INGUINAL HERNIA REPAIR [None]
  - PERIPHERAL COLDNESS [None]
  - PSORIASIS [None]
  - SCRATCH [None]
